FAERS Safety Report 9392754 (Version 1)
Quarter: 2013Q3

REPORT INFORMATION
  Report Type: Spontaneous
  Country: US (occurrence: US)
  Receive Date: 20130710
  Receipt Date: 20130710
  Transmission Date: 20140515
  Serious: Yes (Other)
  Sender: FDA-Public Use
  Company Number: US-BAYER-2013-083788

PATIENT
  Age: 18 Year
  Sex: Female

DRUGS (5)
  1. YAZ [Suspect]
  2. YASMIN [Suspect]
  3. OCELLA [Suspect]
  4. AMOXICILLIN [Concomitant]
     Dosage: UNK
  5. AZITHROMYCIN [Concomitant]
     Dosage: UNK

REACTIONS (2)
  - Transient ischaemic attack [None]
  - Transient ischaemic attack [None]
